FAERS Safety Report 9408643 (Version 2)
Quarter: 2013Q3

REPORT INFORMATION
  Report Type: Report from Study
  Country: US (occurrence: US)
  Receive Date: 20130718
  Receipt Date: 20130726
  Transmission Date: 20140515
  Serious: Yes (Hospitalization)
  Sender: FDA-Public Use
  Company Number: US-US-EMD SERONO, INC.-7224278

PATIENT
  Age: 31 Year
  Sex: Female

DRUGS (1)
  1. REBIF [Suspect]
     Indication: MULTIPLE SCLEROSIS
     Route: 058
     Dates: start: 20130607

REACTIONS (6)
  - Muscular weakness [Recovering/Resolving]
  - Abasia [Recovering/Resolving]
  - Fall [Unknown]
  - Grip strength decreased [Unknown]
  - Visual impairment [Recovering/Resolving]
  - Muscle spasms [Recovering/Resolving]
